FAERS Safety Report 10611299 (Version 1)
Quarter: 2014Q4

REPORT INFORMATION
  Report Type: Spontaneous
  Country: TN (occurrence: None)
  Receive Date: 20141124
  Receipt Date: 20141124
  Transmission Date: 20150529
  Serious: Yes (Hospitalization, Other)
  Sender: FDA-Public Use
  Company Number: TN-ZYDUS-005617

PATIENT
  Age: 58 Year
  Sex: Female

DRUGS (1)
  1. GABAPENTIN (GABAPENTINE) [Suspect]
     Active Substance: GABAPENTIN

REACTIONS (2)
  - Hypersensitivity vasculitis [None]
  - Drug hypersensitivity [None]
